FAERS Safety Report 8797243 (Version 2)
Quarter: 2013Q1

REPORT INFORMATION
  Report Type: Spontaneous
  Country: US (occurrence: US)
  Receive Date: 20120920
  Receipt Date: 20130115
  Transmission Date: 20140127
  Serious: No
  Sender: FDA-Public Use
  Company Number: US-009507513-1209USA002939

PATIENT
  Age: 46 Year
  Sex: Male

DRUGS (2)
  1. PROVENTIL [Suspect]
     Indication: COUGH
     Dosage: 2 PUFFS EVERY 6 HOURS FOR 2 DAYS AND THEN 2 PUFFS EVERY 6-8 HOURS AS NEEDED
     Route: 055
  2. PROVENTIL [Suspect]
     Indication: DYSPNOEA

REACTIONS (3)
  - Throat irritation [Unknown]
  - Nausea [Unknown]
  - Product taste abnormal [Unknown]
